FAERS Safety Report 9031665 (Version 1)
Quarter: 2013Q1

REPORT INFORMATION
  Report Type: Spontaneous
  Country: CA (occurrence: CA)
  Receive Date: 20130124
  Receipt Date: 20130124
  Transmission Date: 20140127
  Serious: Yes (Other)
  Sender: FDA-Public Use
  Company Number: PHHY2013CA005064

PATIENT
  Sex: Male

DRUGS (2)
  1. SANDOSTATIN [Suspect]
     Indication: PANCREATIC CARCINOMA
     Dosage: UNK, TID
     Route: 058
     Dates: start: 20130109
  2. CHEMOTHERAPEUTICS [Suspect]

REACTIONS (3)
  - Hypotension [Unknown]
  - Red blood cell count decreased [Unknown]
  - Asthenia [Unknown]
